FAERS Safety Report 6516199-7 (Version None)
Quarter: 2009Q4

REPORT INFORMATION
  Report Type: 
  Country: None (occurrence: None)
  Receive Date: 20091223
  Receipt Date: 20091214
  Transmission Date: 20100525
  Serious: Yes (Other)
  Sender: FDA-Public Use
  Company Number: US-WATSON-2009-10755

PATIENT
  Sex: Female
  Weight: 49.433 kg

DRUGS (7)
  1. BUPROPION HCL [Suspect]
     Indication: DEPRESSION
     Dosage: 150 MG, QAM
     Route: 048
     Dates: start: 20091129, end: 20091207
  2. CITALOPRAM HYDROBROMIDE [Concomitant]
     Indication: DRUG USE FOR UNKNOWN INDICATION
     Dosage: 40 MG, DAILY
     Route: 048
  3. LEVORA                             /00022701/ [Concomitant]
     Indication: DRUG USE FOR UNKNOWN INDICATION
     Dosage: UNK
     Route: 048
  4. MIDODRINE HYDROCHLORIDE [Concomitant]
     Indication: SYNCOPE
     Dosage: 2.5 MG, TID
     Route: 048
  5. CLARITIN                           /00917501/ [Concomitant]
     Indication: DRUG USE FOR UNKNOWN INDICATION
  6. MULTIVITAMIN                       /00831701/ [Concomitant]
     Indication: DRUG USE FOR UNKNOWN INDICATION
  7. SINGULAIR [Concomitant]
     Indication: DRUG USE FOR UNKNOWN INDICATION
     Dosage: UNK

REACTIONS (12)
  - CARDIAC ARREST [None]
  - CONVULSION [None]
  - CYANOSIS [None]
  - DYSPHAGIA [None]
  - DYSPNOEA [None]
  - FATIGUE [None]
  - GLOSSODYNIA [None]
  - HEADACHE [None]
  - LOSS OF CONSCIOUSNESS [None]
  - PALPITATIONS [None]
  - PARAESTHESIA [None]
  - TREMOR [None]
